FAERS Safety Report 10167226 (Version 1)
Quarter: 2014Q2

REPORT INFORMATION
  Report Type: Spontaneous
  Country: US (occurrence: US)
  Receive Date: 20140512
  Receipt Date: 20140512
  Transmission Date: 20141212
  Serious: No
  Sender: FDA-Public Use
  Company Number: US-PFIZER INC-2014129370

PATIENT
  Age: 69 Year
  Sex: Female
  Weight: 77.1 kg

DRUGS (11)
  1. VENLAFAXINE HCL [Suspect]
     Indication: ANXIETY
     Dosage: 150 MG, 2X/DAY
     Dates: start: 2010
  2. VENLAFAXINE HCL [Suspect]
     Indication: POST-TRAUMATIC STRESS DISORDER
  3. ATENOLOL [Concomitant]
     Indication: HYPERTENSION
     Dosage: 25 MG, DAILY
  4. ASPIRIN [Concomitant]
     Indication: CARDIOVASCULAR EVENT PROPHYLAXIS
     Dosage: 325 MG, DAILY
  5. DIAZEPAM [Concomitant]
     Indication: MUSCLE RELAXANT THERAPY
     Dosage: 2 MG, AS NEEDED
  6. DIAZEPAM [Concomitant]
     Indication: SLEEP DISORDER
  7. FUROSEMIDE [Concomitant]
     Indication: HYPERTENSION
     Dosage: 40 MG, DAILY
  8. ISOSORBIDE [Concomitant]
     Indication: CARDIAC DISORDER
     Dosage: 120 MG, 2X/DAY
  9. LEVOTHYROXINE [Concomitant]
     Indication: THYROID DISORDER
     Dosage: 0.05 MG, DAILY
  10. NITROGLYCERIN [Concomitant]
     Indication: CARDIAC DISORDER
     Dosage: 0.4 MG, MONTHLY
  11. TRAZODONE [Concomitant]
     Indication: ANXIETY
     Dosage: 100 MG, DAILY

REACTIONS (1)
  - Drug ineffective [Unknown]
